FAERS Safety Report 16776863 (Version 2)
Quarter: 2019Q3

REPORT INFORMATION
  Report Type: Spontaneous
  Country: JP (occurrence: JP)
  Receive Date: 20190905
  Receipt Date: 20190919
  Transmission Date: 20191005
  Serious: Yes (Hospitalization, Other)
  Sender: FDA-Public Use
  Company Number: JP-BRISTOL-MYERS SQUIBB COMPANY-BMS-2019-085933

PATIENT
  Age: 79 Year
  Sex: Male
  Weight: 44.1 kg

DRUGS (1)
  1. OPDIVO [Suspect]
     Active Substance: NIVOLUMAB
     Indication: GASTRIC CANCER
     Dosage: UNK
     Route: 041
     Dates: start: 20190822, end: 20190905

REACTIONS (2)
  - Malignant neoplasm progression [Not Recovered/Not Resolved]
  - Oesophageal stent stenosis [Recovered/Resolved]

NARRATIVE: CASE EVENT DATE: 20190827
